FAERS Safety Report 8588444-8 (Version None)
Quarter: 2012Q3

REPORT INFORMATION
  Report Type: 
  Country: None (occurrence: None)
  Receive Date: 20120813
  Receipt Date: 20120809
  Transmission Date: 20120928
  Serious: Yes (Other)
  Sender: FDA-Public Use
  Company Number: CN-BAYER-2012-078939

PATIENT
  Sex: Female

DRUGS (1)
  1. AVELOX [Suspect]
     Indication: LUNG INFECTION
     Dosage: UNK
     Dates: start: 20120803

REACTIONS (2)
  - GLAUCOMA [None]
  - VISUAL IMPAIRMENT [None]
